FAERS Safety Report 5789247-X (Version None)
Quarter: 2008Q2

REPORT INFORMATION
  Report Type: 
  Country: None (occurrence: None)
  Receive Date: 20080625
  Receipt Date: 20080625
  Transmission Date: 20081010
  Serious: Yes (Other)
  Sender: FDA-Public Use
  Company Number: None

PATIENT
  Sex: Female
  Weight: 87.5442 kg

DRUGS (15)
  1. TRANSDERM SCOP [Suspect]
     Indication: PROPHYLAXIS AGAINST MOTION SICKNESS
     Dosage: ONE PATCH Q72 HOURS TRANSDERMAL
     Route: 062
  2. ATENOLOL [Concomitant]
  3. GEMFIBROZIL [Concomitant]
  4. TOPAMAX [Concomitant]
  5. AGGRENOX [Concomitant]
  6. DOCUSATE [Concomitant]
  7. COZAAR [Concomitant]
  8. NITROGLYCERIN [Concomitant]
  9. BETAMETHASONE [Concomitant]
  10. FLUOCINOLONE ACETONIDE [Concomitant]
  11. MUPIROCIN [Concomitant]
  12. OMEPRAZOLE [Concomitant]
  13. ALBUTEROL [Concomitant]
  14. BACITRACIN/POLYMYXIN [Concomitant]
  15. DICYCLOMINE [Concomitant]

REACTIONS (5)
  - ABNORMAL BEHAVIOUR [None]
  - AMNESIA [None]
  - CONFUSIONAL STATE [None]
  - DELUSION [None]
  - DISORIENTATION [None]
